FAERS Safety Report 12757585 (Version 2)
Quarter: 2016Q3

REPORT INFORMATION
  Report Type: Spontaneous
  Country: JP (occurrence: JP)
  Receive Date: 20160919
  Receipt Date: 20160926
  Transmission Date: 20161109
  Serious: Yes (Life-Threatening, Hospitalization)
  Sender: FDA-Public Use
  Company Number: JP-AXELLIA-000980

PATIENT
  Age: 79 Year
  Sex: Male

DRUGS (2)
  1. VANCOMYCIN [Suspect]
     Active Substance: VANCOMYCIN
     Indication: WOUND INFECTION STAPHYLOCOCCAL
     Dosage: STARTED ON DAY 59 OF HOSPITAL ADMISSION
     Route: 042
  2. TEICOPLANIN [Suspect]
     Active Substance: TEICOPLANIN
     Indication: WOUND INFECTION STAPHYLOCOCCAL
     Dosage: INITIATED ON DAY 88 OF HOSPITAL ADMISSION.
     Route: 042

REACTIONS (2)
  - Drug cross-reactivity [Unknown]
  - Drug reaction with eosinophilia and systemic symptoms [Recovered/Resolved]
